FAERS Safety Report 8131446-6 (Version None)
Quarter: 2012Q1

REPORT INFORMATION
  Report Type: 
  Country: None (occurrence: None)
  Receive Date: 20120213
  Receipt Date: 20120203
  Transmission Date: 20120608
  Serious: Yes (Hospitalization)
  Sender: FDA-Public Use
  Company Number: US-BAYER-2011-100277

PATIENT
  Age: 39 Year
  Sex: Female
  Weight: 136 kg

DRUGS (8)
  1. TOPROL-XL [Concomitant]
  2. IBUPROFEN [Concomitant]
  3. ZYRTEC [Concomitant]
  4. YASMIN [Suspect]
     Dosage: UNK
     Route: 048
     Dates: start: 20030101
  5. GUAIFENESIN [Concomitant]
  6. PRILOSEC [Concomitant]
     Dosage: UNK UNK, PRN
  7. YASMIN [Suspect]
     Dosage: UNK
     Dates: start: 20050101, end: 20071017
  8. MUCINEX [Concomitant]

REACTIONS (4)
  - INJURY [None]
  - PAIN [None]
  - PULMONARY EMBOLISM [None]
  - DEEP VEIN THROMBOSIS [None]
